FAERS Safety Report 5346529-3 (Version None)
Quarter: 2007Q2

REPORT INFORMATION
  Report Type: 
  Country: None (occurrence: None)
  Receive Date: 20070430
  Receipt Date: 20070212
  Transmission Date: 20071010
  Serious: Yes (Other)
  Sender: FDA-Public Use
  Company Number: 012820

PATIENT
  Age: 40 Year
  Sex: Female

DRUGS (5)
  1. PRIALT [Suspect]
     Indication: BACK PAIN
     Dosage: SEE IMAGE
     Route: 037
     Dates: start: 20070108, end: 20070125
  2. PRIALT [Suspect]
     Indication: BACK PAIN
     Dosage: SEE IMAGE
     Route: 037
     Dates: start: 20060901
  3. PRIALT [Suspect]
     Indication: BACK PAIN
     Dosage: SEE IMAGE
     Route: 037
     Dates: start: 20070125
  4. DILAUDID [Concomitant]
  5. METHADONE HCL [Concomitant]

REACTIONS (14)
  - COMPLEX REGIONAL PAIN SYNDROME [None]
  - CONFUSIONAL STATE [None]
  - DEPRESSION [None]
  - DRUG INEFFECTIVE [None]
  - FAECAL INCONTINENCE [None]
  - GAIT DISTURBANCE [None]
  - HYPERSOMNIA [None]
  - MEMORY IMPAIRMENT [None]
  - MENINGITIS [None]
  - MOOD ALTERED [None]
  - OEDEMA PERIPHERAL [None]
  - RASH ERYTHEMATOUS [None]
  - SOMNOLENCE [None]
  - SWELLING FACE [None]
